FAERS Safety Report 24391821 (Version 1)
Quarter: 2024Q4

REPORT INFORMATION
  Report Type: Spontaneous
  Country: CA (occurrence: CA)
  Receive Date: 20241003
  Receipt Date: 20241003
  Transmission Date: 20250115
  Serious: Yes (Other)
  Sender: CELLTRION
  Company Number: CA-PFIZER INC-202400265136

PATIENT

DRUGS (3)
  1. INFLECTRA [Suspect]
     Active Substance: INFLIXIMAB-DYYB
     Indication: Crohn^s disease
     Dosage: 600 MG, EVERY 6 WEEKS
     Route: 042
     Dates: start: 20240814
  2. INFLECTRA [Suspect]
     Active Substance: INFLIXIMAB-DYYB
     Dosage: 600 MG, EVERY 6 WEEKS
     Route: 042
     Dates: start: 20240925
  3. CODEINE [Concomitant]
     Active Substance: CODEINE
     Dosage: 1 DF, UNKNOWN DOSEUNKNOWN STOP DATE
     Route: 065

REACTIONS (1)
  - Skin lesion removal [Recovering/Resolving]

NARRATIVE: CASE EVENT DATE: 20240923
